FAERS Safety Report 15259343 (Version 2)
Quarter: 2018Q4

REPORT INFORMATION
  Report Type: Spontaneous
  Country: BR (occurrence: BR)
  Receive Date: 20180809
  Receipt Date: 20181005
  Transmission Date: 20190204
  Serious: Yes (Hospitalization, Other)
  Sender: FDA-Public Use
  Company Number: BR-LUPIN PHARMACEUTICALS INC.-2018-05599

PATIENT
  Age: 46 Year
  Sex: Male

DRUGS (1)
  1. CLOBETASOL PROPIONATE OINTMENT [Suspect]
     Active Substance: CLOBETASOL PROPIONATE
     Indication: PSORIASIS

REACTIONS (5)
  - Hepatic steatosis [Unknown]
  - Hypothalamic pituitary adrenal axis suppression [Not Recovered/Not Resolved]
  - Cushing^s syndrome [Unknown]
  - Adrenal insufficiency [Unknown]
  - Metabolic syndrome [Unknown]
